FAERS Safety Report 6217251-6 (Version None)
Quarter: 2009Q2

REPORT INFORMATION
  Report Type: 
  Country: None (occurrence: None)
  Receive Date: 20090608
  Receipt Date: 20090525
  Transmission Date: 20091009
  Serious: Yes (Hospitalization)
  Sender: FDA-Public Use
  Company Number: FR-PFIZER INC-2009196381

PATIENT
  Age: 79 Year

DRUGS (4)
  1. DALACINE [Suspect]
     Dosage: 1 DF, 2X/DAY
     Route: 048
     Dates: start: 20090210, end: 20090301
  2. NEXEN [Suspect]
     Dosage: 1 DF, 1X/DAY
     Route: 048
     Dates: start: 20090303, end: 20090305
  3. SODIUM BICARBONATE [Concomitant]
     Dosage: UNK
     Dates: start: 20090101
  4. FUNGIZONE [Concomitant]
     Dosage: UNK
     Dates: start: 20090101

REACTIONS (5)
  - CHEILITIS [None]
  - DRUG RASH WITH EOSINOPHILIA AND SYSTEMIC SYMPTOMS [None]
  - EOSINOPHILIA [None]
  - GAMMA-GLUTAMYLTRANSFERASE INCREASED [None]
  - RASH MACULO-PAPULAR [None]
